FAERS Safety Report 14234914 (Version 1)
Quarter: 2017Q4

REPORT INFORMATION
  Report Type: Spontaneous
  Country: US (occurrence: US)
  Receive Date: 20171129
  Receipt Date: 20171129
  Transmission Date: 20180321
  Serious: No
  Sender: FDA-Public Use
  Company Number: US-BAYER-2017-228502

PATIENT

DRUGS (1)
  1. CLARITIN [Suspect]
     Active Substance: LORATADINE
     Dosage: UNK
     Route: 065

REACTIONS (2)
  - Abdominal discomfort [Unknown]
  - Malaise [Unknown]
